FAERS Safety Report 6356797-7 (Version None)
Quarter: 2009Q3

REPORT INFORMATION
  Report Type: 
  Country: None (occurrence: None)
  Receive Date: 20090915
  Receipt Date: 20090911
  Transmission Date: 20100115
  Serious: Yes (Disabling)
  Sender: FDA-Public Use
  Company Number: US-B.I. PHARMACEUTICALS,INC./RIDGEFIELD-2009-BP-07000BP

PATIENT
  Age: 87 Year
  Sex: Male
  Weight: 72.12 kg

DRUGS (6)
  1. MICARDIS [Suspect]
  2. TOPROL-XL [Suspect]
  3. TEKTURNA [Suspect]
     Indication: HYPERTENSION
     Dosage: 150 MG
     Route: 048
     Dates: start: 20090425, end: 20090515
  4. ASPIRIN [Concomitant]
  5. FLOMAX [Concomitant]
  6. LASIX [Concomitant]

REACTIONS (2)
  - MACULAR DEGENERATION [None]
  - VISION BLURRED [None]
